FAERS Safety Report 22364570 (Version 1)
Quarter: 2023Q2

REPORT INFORMATION
  Report Type: Spontaneous
  Country: US (occurrence: US)
  Receive Date: 20230525
  Receipt Date: 20230525
  Transmission Date: 20230721
  Serious: No
  Sender: FDA-Public Use
  Company Number: US-drreddys-SPO/USA/23/0164677

PATIENT
  Age: 14 Year
  Sex: Female

DRUGS (1)
  1. ISOTRETINOIN [Suspect]
     Active Substance: ISOTRETINOIN
     Indication: Product used for unknown indication

REACTIONS (6)
  - Skin fissures [Unknown]
  - Xerosis [Unknown]
  - Cheilitis [Unknown]
  - Epistaxis [Unknown]
  - Blood triglycerides increased [Unknown]
  - Erythema [Unknown]
